FAERS Safety Report 22599358 (Version 2)
Quarter: 2023Q4

REPORT INFORMATION
  Report Type: Report from Study
  Country: CA (occurrence: CA)
  Receive Date: 20230614
  Receipt Date: 20231006
  Transmission Date: 20240110
  Serious: Yes (Other)
  Sender: FDA-Public Use
  Company Number: CA-MYLANLABS-2022M1094388

PATIENT
  Age: 63 Year
  Sex: Female

DRUGS (1)
  1. HULIO [Suspect]
     Active Substance: ADALIMUMAB-FKJP
     Indication: Psoriasis
     Dosage: 40 MILLIGRAM, BIWEEKLY
     Route: 058
     Dates: start: 20220321, end: 20220912

REACTIONS (4)
  - Neoplasm malignant [Unknown]
  - Nasopharyngitis [Unknown]
  - Illness [Unknown]
  - Inappropriate schedule of product administration [Unknown]
